FAERS Safety Report 25456513 (Version 2)
Quarter: 2025Q3

REPORT INFORMATION
  Report Type: Report from Study
  Country: US (occurrence: US)
  Receive Date: 20250619
  Receipt Date: 20250821
  Transmission Date: 20251020
  Serious: No
  Sender: SUNOVION
  Company Number: US-SUMITOMO PHARMA SWITZERLAND GMBH-2025SPA006565

PATIENT
  Age: 82 Year
  Sex: Male

DRUGS (2)
  1. ORGOVYX [Suspect]
     Active Substance: RELUGOLIX
     Indication: Prostate cancer
     Route: 048
  2. ORGOVYX [Suspect]
     Active Substance: RELUGOLIX
     Dosage: 120 MG, QD, WITH BIOLOGICS
     Route: 048
     Dates: start: 20250412

REACTIONS (5)
  - Oropharyngeal pain [Unknown]
  - Joint injury [Unknown]
  - Fatigue [Unknown]
  - Hot flush [Recovering/Resolving]
  - Weight increased [Unknown]
